FAERS Safety Report 4278948-0 (Version None)
Quarter: 2004Q1

REPORT INFORMATION
  Report Type: 
  Country: None (occurrence: None)
  Receive Date: 20040126
  Receipt Date: 20031007
  Transmission Date: 20041129
  Serious: Yes (Other)
  Sender: FDA-Public Use
  Company Number: DE-ROCHE-348790

PATIENT
  Age: 45 Year
  Sex: Male
  Weight: 89.5 kg

DRUGS (5)
  1. PEG-INTERFERON ALFA 2A (RO 25-8310) [Suspect]
     Route: 058
     Dates: start: 20030307, end: 20030821
  2. REBETOL [Concomitant]
     Dosage: ADDITIONAL THERAPY DATES: 25 APR 2003-21 AUG 2003 WITH DOSE OF 600 MG.
     Route: 048
     Dates: start: 20030307, end: 20030424
  3. LAIF 600 [Concomitant]
     Indication: DEPRESSION
     Dates: start: 20030307
  4. ACETAMINOPHEN [Concomitant]
     Dates: start: 20030314
  5. CIPRAMIL [Concomitant]
     Indication: DEPRESSION
     Dosage: ADDITIONAL THERAPY DATES: 27 JUN 2003 - 21 AUG 2003 WITH DOSE OF 40MG.
     Dates: start: 20030502, end: 20030627

REACTIONS (11)
  - ALANINE AMINOTRANSFERASE DECREASED [None]
  - ASPARTATE AMINOTRANSFERASE DECREASED [None]
  - DEPRESSION [None]
  - DYSPNOEA EXERTIONAL [None]
  - GAMMA-GLUTAMYLTRANSFERASE INCREASED [None]
  - HAEMOGLOBIN DECREASED [None]
  - NEUTROPHIL COUNT DECREASED [None]
  - PLATELET COUNT DECREASED [None]
  - POST-TRAUMATIC STRESS DISORDER [None]
  - RED BLOOD CELL COUNT DECREASED [None]
  - WHITE BLOOD CELL COUNT DECREASED [None]
